FAERS Safety Report 7454161-0 (Version None)
Quarter: 2011Q2

REPORT INFORMATION
  Report Type: 
  Country: None (occurrence: None)
  Receive Date: 20110503
  Receipt Date: 20110425
  Transmission Date: 20111010
  Serious: No
  Sender: FDA-Public Use
  Company Number: US-BIOGENIDEC-2011BI015690

PATIENT
  Sex: Female

DRUGS (1)
  1. TYSABRI [Suspect]
     Indication: MULTIPLE SCLEROSIS
     Route: 042
     Dates: start: 20110323

REACTIONS (9)
  - BEDRIDDEN [None]
  - TENDONITIS [None]
  - BALANCE DISORDER [None]
  - LIMB DEFORMITY [None]
  - BURSITIS [None]
  - ASTHENIA [None]
  - ABASIA [None]
  - BURNS SECOND DEGREE [None]
  - FALL [None]
